FAERS Safety Report 4490533-4 (Version None)
Quarter: 2004Q4

REPORT INFORMATION
  Report Type: 
  Country: None (occurrence: None)
  Receive Date: 20041028
  Receipt Date: 20041015
  Transmission Date: 20050328
  Serious: Yes (Other)
  Sender: FDA-Public Use
  Company Number: K200401590

PATIENT
  Age: 61 Year
  Sex: Female

DRUGS (5)
  1. LEVOXYL [Suspect]
     Indication: HYPOTHYROIDISM
     Dosage: 100 MCG, QD, ORAL
     Route: 048
     Dates: start: 20010101
  2. ACTONEL [Concomitant]
  3. ZETIA (EZETEMIBE) [Concomitant]
  4. CALCIUM (CALCIUM) [Concomitant]
  5. VITAMIN E [Concomitant]

REACTIONS (2)
  - FATIGUE [None]
  - PHARMACEUTICAL PRODUCT COMPLAINT [None]
